FAERS Safety Report 23336899 (Version 1)
Quarter: 2023Q4

REPORT INFORMATION
  Report Type: Other
  Country: AU (occurrence: AU)
  Receive Date: 20231226
  Receipt Date: 20231226
  Transmission Date: 20240109
  Serious: Yes (Other)
  Sender: FDA-Public Use
  Company Number: AU-TOLMAR, INC.-23AU045156

PATIENT
  Sex: Male

DRUGS (3)
  1. ELIGARD [Suspect]
     Active Substance: LEUPROLIDE ACETATE
     Indication: Prostate cancer
     Dosage: UNK
  2. ELIGARD [Suspect]
     Active Substance: LEUPROLIDE ACETATE
     Indication: Prostate cancer
     Dosage: UNK
  3. BETABLOCK [Concomitant]
     Indication: Product used for unknown indication

REACTIONS (5)
  - Shoulder fracture [Unknown]
  - Atrial fibrillation [Unknown]
  - Balance disorder [Unknown]
  - Intervertebral disc protrusion [Unknown]
  - Anaemia [Unknown]
